FAERS Safety Report 5284408-0 (Version None)
Quarter: 2007Q1

REPORT INFORMATION
  Report Type: 
  Country: None (occurrence: None)
  Receive Date: 20070327
  Receipt Date: 20070314
  Transmission Date: 20070707
  Serious: Yes (Hospitalization)
  Sender: FDA-Public Use
  Company Number: JPKYO-S-20070016

PATIENT
  Age: 74 Year
  Sex: Male

DRUGS (2)
  1. NAVELBINE [Suspect]
     Indication: DRUG USE FOR UNKNOWN INDICATION
     Dosage: 20 MG IV
     Route: 042
  2. PARAPLATIN [Concomitant]

REACTIONS (2)
  - CHOLECYSTITIS [None]
  - LEUKOPENIA [None]
